FAERS Safety Report 11932097 (Version 6)
Quarter: 2016Q3

REPORT INFORMATION
  Report Type: Spontaneous
  Country: US (occurrence: US)
  Receive Date: 20160120
  Receipt Date: 20160803
  Transmission Date: 20161109
  Serious: Yes (Other)
  Sender: FDA-Public Use
  Company Number: US-ELI_LILLY_AND_COMPANY-US201601004737

PATIENT
  Age: 72 Year
  Sex: Male
  Weight: 96.96 kg

DRUGS (6)
  1. LETAIRIS [Suspect]
     Active Substance: AMBRISENTAN
     Indication: PRODUCT USED FOR UNKNOWN INDICATION
     Dosage: 5 MG, QD
     Route: 065
     Dates: start: 20150710
  2. ADCIRCA [Suspect]
     Active Substance: TADALAFIL
     Indication: PRODUCT USED FOR UNKNOWN INDICATION
     Dosage: 1 DF, UNKNOWN
     Route: 065
  3. TYVASO [Suspect]
     Active Substance: TREPROSTINIL
     Indication: PULMONARY ARTERIAL HYPERTENSION
     Dosage: 3 DF, QID
     Route: 055
     Dates: start: 20150709
  4. TYVASO [Suspect]
     Active Substance: TREPROSTINIL
     Dosage: 12 DF, QID
     Route: 055
     Dates: start: 20150709
  5. LASIX [Suspect]
     Active Substance: FUROSEMIDE
     Indication: PRODUCT USED FOR UNKNOWN INDICATION
     Dosage: UNK
     Route: 065
     Dates: end: 201512
  6. REMODULIN [Suspect]
     Active Substance: TREPROSTINIL
     Indication: PULMONARY ARTERIAL HYPERTENSION
     Dosage: 2 DF, OTHER CONTINUOUS
     Route: 058
     Dates: start: 20160224

REACTIONS (4)
  - Infusion site pain [Unknown]
  - Cough [Unknown]
  - Throat tightness [Unknown]
  - Rash [Unknown]

NARRATIVE: CASE EVENT DATE: 20151226
